FAERS Safety Report 6112654-2 (Version None)
Quarter: 2009Q1

REPORT INFORMATION
  Report Type: 
  Country: None (occurrence: None)
  Receive Date: 20090312
  Receipt Date: 20090305
  Transmission Date: 20090719
  Serious: Yes (Hospitalization)
  Sender: FDA-Public Use
  Company Number: US-ASTRAZENECA-2009UW06013

PATIENT
  Sex: Male

DRUGS (3)
  1. CRESTOR [Suspect]
     Route: 048
  2. AVELOX [Concomitant]
  3. PREDNISONE [Concomitant]

REACTIONS (2)
  - HEPATIC ENZYME INCREASED [None]
  - HOSPITALISATION [None]
